FAERS Safety Report 8180909-6 (Version None)
Quarter: 2012Q1

REPORT INFORMATION
  Report Type: 
  Country: None (occurrence: None)
  Receive Date: 20120302
  Receipt Date: 20120227
  Transmission Date: 20120608
  Serious: Yes (Other)
  Sender: FDA-Public Use
  Company Number: US-ABBOTT-12P-163-0898777-00

PATIENT
  Age: 27 Year
  Sex: Female

DRUGS (7)
  1. PREDNISONE TAB [Concomitant]
  2. HUMIRA [Suspect]
     Indication: PSORIASIS
     Dates: start: 20111130
  3. VIIBRYD [Concomitant]
     Indication: DEPRESSION
     Route: 048
  4. PREDNISONE TAB [Concomitant]
     Indication: PRODUCT USED FOR UNKNOWN INDICATION
  5. VICODIN [Concomitant]
     Indication: PRODUCT USED FOR UNKNOWN INDICATION
  6. TRAZODONE HCL [Concomitant]
     Indication: INSOMNIA
     Dosage: 100-200MG, AS NEEDED
     Route: 048
  7. PREDNISONE TAB [Concomitant]

REACTIONS (7)
  - ANEURYSM [None]
  - ASTHENIA [None]
  - RHEUMATOID ARTHRITIS [None]
  - MALAISE [None]
  - PAIN [None]
  - ARTHRALGIA [None]
  - CROHN'S DISEASE [None]
